FAERS Safety Report 5965571-2 (Version None)
Quarter: 2008Q4

REPORT INFORMATION
  Report Type: 
  Country: None (occurrence: None)
  Receive Date: 20081125
  Receipt Date: 20081117
  Transmission Date: 20090506
  Serious: Yes (Hospitalization)
  Sender: FDA-Public Use
  Company Number: US-KINGPHARMUSA00001-K200801314

PATIENT
  Age: 35 Year
  Sex: Female
  Weight: 63.5 kg

DRUGS (5)
  1. SKELAXIN [Suspect]
     Indication: BURSITIS
     Dosage: 800 MG, PRN
     Dates: end: 20081019
  2. LUNESTA [Suspect]
     Indication: INSOMNIA
     Dosage: 3 MG, PRN 5-6 NIGHTS/WEEK
     Route: 048
     Dates: start: 20070101, end: 20081019
  3. MOBIC [Suspect]
     Indication: BURSITIS
     Dosage: 15 MG, PRN
     Dates: end: 20081019
  4. VICODIN ES [Suspect]
     Indication: BURSITIS
     Dosage: PRN
     Dates: end: 20081019
  5. IBUPROFEN TABLETS [Concomitant]

REACTIONS (4)
  - ABNORMAL SLEEP-RELATED EVENT [None]
  - CARBON MONOXIDE POISONING [None]
  - LOSS OF CONSCIOUSNESS [None]
  - SOMNAMBULISM [None]
